FAERS Safety Report 18224759 (Version 1)
Quarter: 2020Q3

REPORT INFORMATION
  Report Type: Spontaneous
  Country: US (occurrence: US)
  Receive Date: 20200902
  Receipt Date: 20200902
  Transmission Date: 20201103
  Serious: No
  Sender: FDA-Public Use
  Company Number: US-VELOXIS PHARMACEUTICALS-2019VELUS-000751

PATIENT
  Age: 56 Year
  Sex: Female

DRUGS (2)
  1. ENVARSUS XR [Suspect]
     Active Substance: TACROLIMUS
     Indication: PRODUCT USED FOR UNKNOWN INDICATION
     Dosage: 14 MG DAILY (CONCENTRATION 4 MG)
     Dates: start: 20190930
  2. ENVARSUS XR [Suspect]
     Active Substance: TACROLIMUS
     Dosage: 14 MG DAILY (CONCENTRATION 1 MG)
     Dates: start: 20190930

REACTIONS (2)
  - Dizziness [Recovered/Resolved]
  - Nausea [Recovered/Resolved]

NARRATIVE: CASE EVENT DATE: 20190930
